FAERS Safety Report 5286753-1 (Version None)
Quarter: 2007Q1

REPORT INFORMATION
  Report Type: 
  Country: None (occurrence: None)
  Receive Date: 20070116
  Receipt Date: 20061114
  Transmission Date: 20070707
  Serious: No
  Sender: FDA-Public Use
  Company Number: 2006SP004042

PATIENT
  Age: 85 Year
  Sex: Female
  Weight: 79.3795 kg

DRUGS (3)
  1. LUNESTA [Suspect]
     Indication: INSOMNIA
     Dosage: 1 MG; HS; ORAL
     Route: 048
     Dates: start: 20061107, end: 20061108
  2. PRAMIPEXOLE DIHYDROCHLORIDE [Concomitant]
  3. SINEMET [Concomitant]

REACTIONS (3)
  - DRUG INEFFECTIVE [None]
  - FEELING OF RELAXATION [None]
  - INITIAL INSOMNIA [None]
